FAERS Safety Report 10932037 (Version 2)
Quarter: 2016Q3

REPORT INFORMATION
  Report Type: Spontaneous
  Country: US (occurrence: US)
  Receive Date: 20150319
  Receipt Date: 20160721
  Transmission Date: 20161109
  Serious: Yes (Death, Life-Threatening, Congenital Anomaly, Other)
  Sender: FDA-Public Use
  Company Number: US-ELI_LILLY_AND_COMPANY-US201503006019

PATIENT

DRUGS (1)
  1. PROZAC [Suspect]
     Active Substance: FLUOXETINE HYDROCHLORIDE
     Indication: PRODUCT USED FOR UNKNOWN INDICATION
     Dosage: UNK, UNKNOWN
     Route: 064

REACTIONS (5)
  - Hypoplastic left heart syndrome [Unknown]
  - Stillbirth [Fatal]
  - Erythroblastosis foetalis [Unknown]
  - Exposure during pregnancy [Unknown]
  - Hydrops foetalis [Unknown]
